FAERS Safety Report 9269525 (Version 2)
Quarter: 2013Q2

REPORT INFORMATION
  Report Type: Spontaneous
  Country: US (occurrence: US)
  Receive Date: 20130503
  Receipt Date: 20130613
  Transmission Date: 20140414
  Serious: Yes (Other)
  Sender: FDA-Public Use
  Company Number: US-PFIZER INC-2013135172

PATIENT
  Age: 70 Year
  Sex: Male
  Weight: 102.49 kg

DRUGS (9)
  1. LIPITOR [Suspect]
     Indication: BLOOD CHOLESTEROL INCREASED
     Dosage: 20 MG, 1X/DAY
     Route: 048
     Dates: end: 201304
  2. LIPITOR [Suspect]
     Dosage: 20 MG, 1X/DAY
     Route: 048
     Dates: start: 201304
  3. NEXIUM [Concomitant]
     Dosage: UNK
  4. LOTREL [Concomitant]
     Dosage: UNK
  5. COZAAR [Concomitant]
     Dosage: UNK
  6. KEPPRA [Concomitant]
     Dosage: UNK
  7. VIMPAT [Concomitant]
     Dosage: UNK
  8. ZETIA [Concomitant]
     Dosage: UNK
  9. NIASPAN [Concomitant]
     Dosage: UNK

REACTIONS (2)
  - Osteoarthritis [Not Recovered/Not Resolved]
  - Pain in extremity [Not Recovered/Not Resolved]
